FAERS Safety Report 21294361 (Version 1)
Quarter: 2022Q3

REPORT INFORMATION
  Report Type: Spontaneous
  Country: US (occurrence: US)
  Receive Date: 20220905
  Receipt Date: 20220905
  Transmission Date: 20221027
  Serious: No
  Sender: FDA-Public Use
  Company Number: US-ELI_LILLY_AND_COMPANY-US202208004545

PATIENT
  Age: 72 Year

DRUGS (1)
  1. BEBTELOVIMAB [Suspect]
     Active Substance: BEBTELOVIMAB
     Indication: Product used for unknown indication
     Dosage: 175 MG, SINGLE
     Route: 065
     Dates: start: 20220805

REACTIONS (5)
  - Chest discomfort [Unknown]
  - Headache [Unknown]
  - Chest pain [Unknown]
  - Lymphadenopathy [Unknown]
  - Dyspnoea [Unknown]
